FAERS Safety Report 4339087-3 (Version None)
Quarter: 2004Q2

REPORT INFORMATION
  Report Type: 
  Country: None (occurrence: None)
  Receive Date: 20040412
  Receipt Date: 20040330
  Transmission Date: 20050107
  Serious: Yes (Other)
  Sender: FDA-Public Use
  Company Number: HQWYE293131MAR04

PATIENT
  Age: 69 Year
  Sex: Female

DRUGS (2)
  1. VANCOLED [Suspect]
  2. TAZOCIN              (PIPERACILLIN/TAZOBACTAM, INJECTION) [Suspect]

REACTIONS (1)
  - LINEAR IGA DISEASE [None]
